FAERS Safety Report 11579810 (Version 2)
Quarter: 2015Q4

REPORT INFORMATION
  Report Type: Spontaneous
  Country: US (occurrence: US)
  Receive Date: 20150930
  Receipt Date: 20151109
  Transmission Date: 20160304
  Serious: Yes (Other)
  Sender: FDA-Public Use
  Company Number: US-PFIZER INC-2015316511

PATIENT
  Age: 66 Year
  Sex: Female
  Weight: 69 kg

DRUGS (1)
  1. RELPAX [Suspect]
     Active Substance: ELETRIPTAN HYDROBROMIDE
     Indication: MIGRAINE
     Dosage: 40MG TABLETS, ONE TABLET BY MOUTH PER HEADACHE. MAY REPEAT DOSE IN TWO HOURS FOR A MAXIMUM OF 80MG
     Route: 048
     Dates: end: 20150915

REACTIONS (4)
  - Crying [Unknown]
  - Fall [Unknown]
  - Fibromyalgia [Unknown]
  - Spinal column injury [Unknown]
